FAERS Safety Report 22050872 (Version 1)
Quarter: 2023Q1

REPORT INFORMATION
  Report Type: Spontaneous
  Country: US (occurrence: None)
  Receive Date: 20230301
  Receipt Date: 20230301
  Transmission Date: 20230417
  Serious: Yes (Hospitalization)
  Sender: FDA-Public Use
  Company Number: None

PATIENT
  Age: 79 Year
  Sex: Male

DRUGS (1)
  1. ABIRATERONE [Suspect]
     Active Substance: ABIRATERONE
     Dosage: FREQUENCY : DAILY;?
     Route: 048

REACTIONS (5)
  - Urinary tract infection [None]
  - Platelet count decreased [None]
  - Dyspnoea [None]
  - Biopsy liver [None]
  - Biopsy bone marrow [None]

NARRATIVE: CASE EVENT DATE: 20230224
